FAERS Safety Report 6428239-4 (Version None)
Quarter: 2009Q4

REPORT INFORMATION
  Report Type: 
  Country: None (occurrence: None)
  Receive Date: 20091105
  Receipt Date: 20091029
  Transmission Date: 20100525
  Serious: Yes (Hospitalization)
  Sender: FDA-Public Use
  Company Number: BR-ABBOTT-09P-020-0586583-00

PATIENT
  Sex: Female
  Weight: 60 kg

DRUGS (6)
  1. HUMIRA [Suspect]
     Indication: CROHN'S DISEASE
     Route: 058
     Dates: start: 20090701
  2. MERCAPTOPURINE [Concomitant]
     Indication: IMMUNOSUPPRESSION
     Dates: start: 20090701
  3. MESALAZINE [Concomitant]
     Indication: GASTROINTESTINAL INFLAMMATION
     Route: 048
     Dates: start: 20080101
  4. SERTRALINE HCL [Concomitant]
     Indication: DEPRESSION
     Route: 048
     Dates: start: 20080101
  5. LEVOTHYROXINE SODIUM [Concomitant]
     Indication: HYPOTHYROIDISM
     Dosage: FORM STRENGTH: 258 MICROGRAM
     Route: 048
     Dates: start: 20040101
  6. FOLIC ACID [Concomitant]
     Indication: DRUG USE FOR UNKNOWN INDICATION
     Route: 048
     Dates: start: 20070101

REACTIONS (4)
  - ABDOMINAL PAIN [None]
  - ASCITES [None]
  - ENDOMETRIOSIS [None]
  - INJECTION SITE PAIN [None]
